FAERS Safety Report 5750615-3 (Version None)
Quarter: 2008Q2

REPORT INFORMATION
  Report Type: 
  Country: None (occurrence: None)
  Receive Date: 20080523
  Receipt Date: 20080523
  Transmission Date: 20081010
  Serious: Yes (Hospitalization)
  Sender: FDA-Public Use
  Company Number: None

PATIENT
  Sex: Female
  Weight: 113.3993 kg

DRUGS (1)
  1. FENTANYL TRANSDERMAL SYSTEM [Suspect]
     Indication: DIABETIC NEUROPATHY
     Dosage: PATCH 1 EVERY 3 DAYS TRANSDERMAL
     Route: 062
     Dates: start: 20020101, end: 20080522

REACTIONS (2)
  - CONFUSIONAL STATE [None]
  - UNRESPONSIVE TO STIMULI [None]
